FAERS Safety Report 7952663-1 (Version None)
Quarter: 2011Q4

REPORT INFORMATION
  Report Type: 
  Country: None (occurrence: None)
  Receive Date: 20111201
  Receipt Date: 20111118
  Transmission Date: 20120403
  Serious: Yes (Hospitalization)
  Sender: FDA-Public Use
  Company Number: US-NOVEN-11US003656

PATIENT
  Sex: Female
  Weight: 60.317 kg

DRUGS (8)
  1. CARAFATE [Concomitant]
  2. TYLENOL (CAPLET) [Concomitant]
     Indication: HEADACHE
  3. FENTANYL [Suspect]
     Indication: BACK PAIN
     Dosage: 50 UG/HR, Q48HRS
     Route: 062
     Dates: start: 20090101
  4. PRILOSEC [Concomitant]
  5. DILAUDID [Concomitant]
  6. EXCEDRIN                           /00110301/ [Concomitant]
     Indication: HEADACHE
  7. NORCO [Concomitant]
     Indication: BREAKTHROUGH PAIN
     Dosage: UNK
  8. FENTANYL [Suspect]
     Indication: INTERVERTEBRAL DISC OPERATION

REACTIONS (1)
  - COELIAC DISEASE [None]
